FAERS Safety Report 17861772 (Version 1)
Quarter: 2020Q2

REPORT INFORMATION
  Report Type: Spontaneous
  Country: US (occurrence: US)
  Receive Date: 20200604
  Receipt Date: 20200604
  Transmission Date: 20200714
  Serious: No
  Sender: FDA-Public Use
  Company Number: US-ALKERMES INC.-ALK-2020-002250

PATIENT
  Age: 18 Year
  Sex: Male

DRUGS (2)
  1. ARISTADA [Suspect]
     Active Substance: ARIPIPRAZOLE LAUROXIL
     Dosage: 441 MILLIGRAM, QMO
     Route: 030
  2. ARISTADA [Suspect]
     Active Substance: ARIPIPRAZOLE LAUROXIL
     Indication: SCHIZOPHRENIA
     Dosage: 441 MILLIGRAM, QMO
     Route: 030
     Dates: start: 202005

REACTIONS (6)
  - Vomiting [Recovered/Resolved]
  - Injection site discomfort [Unknown]
  - Feeling hot [Unknown]
  - Injection site pain [Unknown]
  - Restlessness [Not Recovered/Not Resolved]
  - Injected limb mobility decreased [Recovered/Resolved]

NARRATIVE: CASE EVENT DATE: 2020
